FAERS Safety Report 13162951 (Version 1)
Quarter: 2017Q1

REPORT INFORMATION
  Report Type: Spontaneous
  Country: US (occurrence: US)
  Receive Date: 20170130
  Receipt Date: 20170130
  Transmission Date: 20170428
  Serious: Yes (Hospitalization, Other)
  Sender: FDA-Public Use
  Company Number: US-GLAXOSMITHKLINE-US2017010769

PATIENT
  Age: 62 Year
  Sex: Female

DRUGS (11)
  1. GRAPESEED EXTRACT [Concomitant]
  2. RISPERDAL [Concomitant]
     Active Substance: RISPERIDONE
  3. GINGER ROOT [Concomitant]
     Active Substance: GINGER
  4. HYDROCORTISONE. [Concomitant]
     Active Substance: HYDROCORTISONE
  5. COQ10 [Concomitant]
     Active Substance: UBIDECARENONE
  6. OXYGEN. [Concomitant]
     Active Substance: OXYGEN
  7. OSTEO BI-FLEX [Concomitant]
     Active Substance: CHONDROITIN SULFATE A\GLUCOSAMINE
  8. D-RIBOSE [Concomitant]
     Active Substance: DIETARY SUPPLEMENT
  9. VENTOLIN HFA [Suspect]
     Active Substance: ALBUTEROL SULFATE
     Indication: CHRONIC OBSTRUCTIVE PULMONARY DISEASE
     Dosage: 2 PUFF(S), QID
     Route: 055
  10. DHEA [Concomitant]
     Active Substance: PRASTERONE
  11. ACETYLCYSTEINE. [Concomitant]
     Active Substance: ACETYLCYSTEINE

REACTIONS (15)
  - Atypical pneumonia [Unknown]
  - Heart rate increased [Recovering/Resolving]
  - Palpitations [Not Recovered/Not Resolved]
  - Rales [Recovered/Resolved]
  - Malaise [Not Recovered/Not Resolved]
  - Middle insomnia [Unknown]
  - Drug ineffective [Recovering/Resolving]
  - Asthma [Recovered/Resolved]
  - Therapeutic response unexpected [Unknown]
  - Inappropriate schedule of drug administration [Unknown]
  - Dizziness postural [Recovering/Resolving]
  - Overdose [Not Recovered/Not Resolved]
  - Bronchial hyperreactivity [Recovered/Resolved]
  - Myocardial infarction [Recovered/Resolved]
  - Pulmonary congestion [Recovering/Resolving]

NARRATIVE: CASE EVENT DATE: 201603
